FAERS Safety Report 20909858 (Version 2)
Quarter: 2022Q3

REPORT INFORMATION
  Report Type: Report from Study
  Country: CA (occurrence: CA)
  Receive Date: 20220603
  Receipt Date: 20220705
  Transmission Date: 20221027
  Serious: Yes (Other)
  Sender: FDA-Public Use
  Company Number: CA-CELLTRION INC.-2022CA006273

PATIENT

DRUGS (4)
  1. TRUXIMA [Suspect]
     Active Substance: RITUXIMAB-ABBS
     Indication: Vasculitis
     Dosage: INFUSION#1
  2. TRUXIMA [Suspect]
     Active Substance: RITUXIMAB-ABBS
     Indication: Carcinoid tumour
     Dosage: 500 MG, INFUSION #2
     Route: 042
     Dates: start: 20220428
  3. TRUXIMA [Suspect]
     Active Substance: RITUXIMAB-ABBS
     Dosage: 750 MG, INFUSION #3
     Route: 042
     Dates: start: 20220428
  4. TRUXIMA [Suspect]
     Active Substance: RITUXIMAB-ABBS
     Dosage: 750 MG, INFUSION #4
     Route: 042
     Dates: start: 20220428

REACTIONS (4)
  - Cardiac operation [Unknown]
  - Visual impairment [Unknown]
  - Visual impairment [Not Recovered/Not Resolved]
  - Arteriosclerosis [Not Recovered/Not Resolved]
